FAERS Safety Report 14473520 (Version 1)
Quarter: 2018Q1

REPORT INFORMATION
  Report Type: Spontaneous
  Country: US (occurrence: US)
  Receive Date: 20180201
  Receipt Date: 20180201
  Transmission Date: 20180509
  Serious: No
  Sender: FDA-Public Use
  Company Number: US-BAYER-2018-018037

PATIENT
  Sex: Female

DRUGS (2)
  1. CLARITIN [Suspect]
     Active Substance: LORATADINE
     Indication: INFLUENZA
     Route: 065
  2. CLARITIN [Suspect]
     Active Substance: LORATADINE
     Indication: LOWER RESPIRATORY TRACT INFECTION

REACTIONS (2)
  - Off label use [Unknown]
  - Product use in unapproved indication [Unknown]
